FAERS Safety Report 21678272 (Version 1)
Quarter: 2022Q4

REPORT INFORMATION
  Report Type: Spontaneous
  Country: IN (occurrence: IN)
  Receive Date: 20221203
  Receipt Date: 20221203
  Transmission Date: 20230113
  Serious: Yes (Death, Life-Threatening, Hospitalization, Other)
  Sender: FDA-Public Use
  Company Number: IN-Accord-289425

PATIENT
  Age: 65 Year
  Sex: Female

DRUGS (2)
  1. METHOTREXATE [Suspect]
     Active Substance: METHOTREXATE
     Indication: Psoriasis
     Dosage: SHE WAS ACCIDENTALLY GIVEN DOSE OF MTX 7.5 MG OD AND FOLIC ACID 5 MG ONCE A WEEK BY HER RELATIVE
  2. FOLIC ACID [Concomitant]
     Active Substance: FOLIC ACID
     Dosage: SHE WAS ACCIDENTALLY GIVEN DOSE OF MTX 7.5 MG OD AND FOLIC ACID 5 MG ONCE A WEEK BY HER RELATIVE

REACTIONS (9)
  - Accidental overdose [Fatal]
  - Thrombocytopenia [Fatal]
  - Toxicity to various agents [Fatal]
  - Psoriasis [Unknown]
  - Stomatitis [Unknown]
  - Myelosuppression [Unknown]
  - Renal impairment [Unknown]
  - Skin haemorrhage [Unknown]
  - Hypotension [Unknown]
